FAERS Safety Report 24087494 (Version 1)
Quarter: 2024Q3

REPORT INFORMATION
  Report Type: Spontaneous
  Country: IL (occurrence: IL)
  Receive Date: 20240714
  Receipt Date: 20240714
  Transmission Date: 20241017
  Serious: Yes (Other)
  Sender: TEVA
  Company Number: IL-TEVA-VS-3219350

PATIENT
  Age: 80 Year
  Sex: Male

DRUGS (1)
  1. GABAPENTIN [Suspect]
     Active Substance: GABAPENTIN
     Indication: Product used for unknown indication
     Dosage: 300 ABOUT 3 TIMES
     Route: 065

REACTIONS (3)
  - Facial paralysis [Unknown]
  - Arthralgia [Unknown]
  - Neuropathy peripheral [Unknown]
